FAERS Safety Report 9160040 (Version 1)
Quarter: 2013Q1

REPORT INFORMATION
  Report Type: Spontaneous
  Country: BE (occurrence: BE)
  Receive Date: 20130313
  Receipt Date: 20130313
  Transmission Date: 20140127
  Serious: Yes (Other)
  Sender: FDA-Public Use
  Company Number: BE-ASTRAZENECA-2013SE15337

PATIENT
  Sex: Male

DRUGS (4)
  1. CRESTOR [Suspect]
     Indication: HYPERCHOLESTEROLAEMIA
     Route: 048
  2. SOTALOL [Suspect]
     Indication: ARRHYTHMIA
     Route: 065
  3. SOTALOL [Suspect]
     Indication: TACHYCARDIA
     Route: 065
  4. ANTIHYPERTENSIVES [Suspect]
     Indication: HYPERTENSION
     Route: 065

REACTIONS (9)
  - Deformity [Unknown]
  - Swelling face [Unknown]
  - Erythema [Unknown]
  - Hypertension [Unknown]
  - Sinusitis [Unknown]
  - Trigeminal neuralgia [Unknown]
  - Pain [Unknown]
  - Tachycardia [Unknown]
  - Drug hypersensitivity [Unknown]
